FAERS Safety Report 5158485-1 (Version None)
Quarter: 2006Q4

REPORT INFORMATION
  Report Type: 
  Country: None (occurrence: None)
  Receive Date: 20061128
  Receipt Date: 20060518
  Transmission Date: 20070319
  Serious: Yes (Death, Other)
  Sender: FDA-Public Use
  Company Number: US-ELI_LILLY_AND_COMPANY-US200605004841

PATIENT
  Sex: Female
  Weight: 44.444 kg

DRUGS (1)
  1. ZYPREXA [Suspect]
     Dosage: 10 MG, 2/D
     Dates: end: 20030601

REACTIONS (7)
  - ASTHENIA [None]
  - CARDIO-RESPIRATORY ARREST [None]
  - CONFUSIONAL STATE [None]
  - CONVULSION [None]
  - DEMENTIA ALZHEIMER'S TYPE [None]
  - HYPOTENSION [None]
  - MOVEMENT DISORDER [None]
